FAERS Safety Report 6182996-3 (Version None)
Quarter: 2009Q2

REPORT INFORMATION
  Report Type: 
  Country: None (occurrence: None)
  Receive Date: 20090507
  Receipt Date: 20090428
  Transmission Date: 20091009
  Serious: Yes (Hospitalization)
  Sender: FDA-Public Use
  Company Number: PHHY2009DE16176

PATIENT
  Sex: Female

DRUGS (4)
  1. ACLASTA [Suspect]
     Indication: OSTEOPOROSIS
     Dosage: 5 MG, UNK
     Route: 042
     Dates: start: 20090304
  2. PANZYTRAT [Concomitant]
     Dosage: 25000 IU, TID
     Route: 048
  3. CALCIMAGON-D3 [Concomitant]
  4. MAGNESIUM VERLA N [Concomitant]
     Dosage: 1 DF, TID
     Route: 048

REACTIONS (9)
  - CHEST PAIN [None]
  - DRUG HYPERSENSITIVITY [None]
  - DYSPNOEA [None]
  - FIBRIN D DIMER INCREASED [None]
  - GENERAL PHYSICAL HEALTH DETERIORATION [None]
  - HEADACHE [None]
  - PARAESTHESIA [None]
  - PYREXIA [None]
  - TACHYCARDIA [None]
